FAERS Safety Report 24010438 (Version 1)
Quarter: 2024Q2

REPORT INFORMATION
  Report Type: Spontaneous
  Country: US (occurrence: None)
  Receive Date: 20240624
  Receipt Date: 20240624
  Transmission Date: 20240715
  Serious: Yes (Other)
  Sender: FDA-Public Use
  Company Number: None

PATIENT
  Age: 10 Year
  Sex: Male
  Weight: 43.2 kg

DRUGS (7)
  1. ALLERGY RELIEF (LEVOCETIRIZINE DIHYDROCHLORIDE) [Suspect]
     Active Substance: LEVOCETIRIZINE DIHYDROCHLORIDE
     Indication: Upper-airway cough syndrome
     Dosage: OTHER QUANTITY : 1 TABLET(S)?FREQUENCY : AT BEDTIME?
     Route: 048
     Dates: start: 20240426, end: 20240621
  2. ALLERGY RELIEF (LEVOCETIRIZINE DIHYDROCHLORIDE) [Suspect]
     Active Substance: LEVOCETIRIZINE DIHYDROCHLORIDE
     Indication: Multiple allergies
  3. Lev albuterol inhaler [Concomitant]
  4. QVAR REDIHALER [Concomitant]
     Active Substance: BECLOMETHASONE DIPROPIONATE
  5. VITAMIN C [Concomitant]
     Active Substance: ASCORBIC ACID
  6. VITAMIN D [Concomitant]
     Active Substance: VITAMIN D NOS
  7. VITAMINS [Concomitant]
     Active Substance: VITAMINS

REACTIONS (1)
  - Suicidal behaviour [None]

NARRATIVE: CASE EVENT DATE: 20240621
